FAERS Safety Report 14662842 (Version 1)
Quarter: 2018Q1

REPORT INFORMATION
  Report Type: Spontaneous
  Country: RU (occurrence: RU)
  Receive Date: 20180321
  Receipt Date: 20180321
  Transmission Date: 20180509
  Serious: No
  Sender: FDA-Public Use
  Company Number: RU-LUPIN PHARMACEUTICALS INC.-2017-06845

PATIENT
  Age: 3 Year
  Sex: Male

DRUGS (5)
  1. IXIME [Suspect]
     Active Substance: CEFIXIME
     Indication: RESPIRATORY DISORDER
     Dosage: 5 ML, UNK
     Route: 065
     Dates: start: 20171021, end: 20171023
  2. GENFERON [Suspect]
     Active Substance: BENZOCAINE\INTERFERON ALFA-2B\TAURINE
     Indication: RESPIRATORY DISORDER
     Dosage: 1 DF, (PER RECTUM, 1 SUPP. PER DAY )
     Route: 065
     Dates: start: 20171021, end: 20171023
  3. VIBROCIL                           /00168701/ [Concomitant]
     Indication: RESPIRATORY DISORDER
     Dosage: 1-2 DROPS, 3-4 TIMES PER DAY
     Route: 065
  4. MIRAMISTIN [Suspect]
     Active Substance: MIRAMISTIN
     Indication: RESPIRATORY DISORDER
     Dosage: UNK
     Route: 065
     Dates: start: 20171021, end: 20171023
  5. ASCORIL [Concomitant]
     Indication: RESPIRATORY DISORDER
     Dosage: SYRUP 3-5 ML , TID
     Route: 065
     Dates: start: 20171021, end: 20171030

REACTIONS (1)
  - Rash [Recovered/Resolved]

NARRATIVE: CASE EVENT DATE: 20171022
